FAERS Safety Report 9772032 (Version 2)
Quarter: 2014Q1

REPORT INFORMATION
  Report Type: Spontaneous
  Country: DE (occurrence: DE)
  Receive Date: 20131219
  Receipt Date: 20140120
  Transmission Date: 20141002
  Serious: Yes (Hospitalization, Other)
  Sender: FDA-Public Use
  Company Number: DE-ROCHE-1320773

PATIENT
  Age: 55 Year
  Sex: Male
  Weight: 75 kg

DRUGS (8)
  1. ROACTEMRA [Suspect]
     Indication: RHEUMATOID ARTHRITIS
     Route: 042
     Dates: start: 20120919
  2. ROACTEMRA [Suspect]
     Dosage: THERAPY WITH TOCILIZUMAB WAS RESTARTED ON  UNSPECIFIED DATE AND PAUSED ON AN UNSPECIFIED DATE.
     Route: 042
  3. ROACTEMRA [Suspect]
     Dosage: THERAPY WITH TOCILIZUMAB WAS RESTARTED ON UNSPECIFIED DATE.
     Route: 042
     Dates: end: 20131202
  4. INSULIN [Concomitant]
     Indication: DIABETES MELLITUS
     Route: 058
     Dates: start: 2002
  5. SIMVASTATIN [Concomitant]
     Indication: CORONARY ARTERY DISEASE
     Route: 048
     Dates: start: 2004
  6. NEBIVOLOL [Concomitant]
     Indication: CORONARY ARTERY DISEASE
     Route: 048
     Dates: start: 2004
  7. METHOTREXATE [Concomitant]
     Indication: RHEUMATOID ARTHRITIS
     Route: 058
     Dates: start: 200611
  8. PANTOZOL (GERMANY) [Concomitant]
     Indication: PROPHYLAXIS AGAINST GASTROINTESTINAL ULCER
     Route: 048
     Dates: start: 2006

REACTIONS (4)
  - Ileus [Recovered/Resolved]
  - Incisional hernia [Recovered/Resolved]
  - Diabetes mellitus inadequate control [Recovered/Resolved]
  - Facial paresis [Recovered/Resolved]
